FAERS Safety Report 6977624-0 (Version None)
Quarter: 2010Q3

REPORT INFORMATION
  Report Type: 
  Country: None (occurrence: None)
  Receive Date: 20100913
  Receipt Date: 20100902
  Transmission Date: 20110219
  Serious: Yes (Hospitalization, Other)
  Sender: FDA-Public Use
  Company Number: US-BIOGENIDEC-2010BI027887

PATIENT
  Sex: Male

DRUGS (2)
  1. AVONEX [Suspect]
     Indication: MULTIPLE SCLEROSIS
     Route: 030
     Dates: start: 20100218
  2. AMBIEN [Concomitant]
     Indication: SLEEP DISORDER

REACTIONS (13)
  - AMNESIA [None]
  - ATAXIA [None]
  - CEREBROVASCULAR ACCIDENT [None]
  - CONTUSION [None]
  - CORONARY ARTERY DISEASE [None]
  - DIZZINESS [None]
  - FALL [None]
  - HALLUCINATION, VISUAL [None]
  - HEAD INJURY [None]
  - HYPERLIPIDAEMIA [None]
  - HYPERTENSION [None]
  - NEOPLASM MALIGNANT [None]
  - SYMPATHECTOMY [None]
